FAERS Safety Report 25447458 (Version 1)
Quarter: 2025Q2

REPORT INFORMATION
  Report Type: Spontaneous
  Country: DE (occurrence: DE)
  Receive Date: 20250617
  Receipt Date: 20250617
  Transmission Date: 20250716
  Serious: Yes (Hospitalization, Other)
  Sender: MYLAN
  Company Number: None

PATIENT
  Age: 61 Year
  Sex: Female
  Weight: 80 kg

DRUGS (12)
  1. CLOZAPINE [Suspect]
     Active Substance: CLOZAPINE
     Indication: Schizophrenia
     Dosage: 500 MILLIGRAM, QD (200-0-300 MG)
     Dates: start: 20240901
  2. CLOZAPINE [Suspect]
     Active Substance: CLOZAPINE
     Indication: Depression
     Dates: start: 20250515, end: 20250519
  3. CLOZAPINE [Suspect]
     Active Substance: CLOZAPINE
     Dosage: 100 MILLIGRAM, QD (RE-DOSED, 1X DAILY. 100MG)
     Dates: start: 20250520, end: 20250521
  4. CLOZAPINE [Suspect]
     Active Substance: CLOZAPINE
  5. CLOZAPINE [Suspect]
     Active Substance: CLOZAPINE
     Dosage: 50 MILLIGRAM, BID
     Dates: start: 20250523, end: 20250530
  6. QUETIAPINE [Concomitant]
     Active Substance: QUETIAPINE
     Indication: Schizophrenia
     Dosage: 1 DOSAGE FORM, QD (0 -0 -1;DURATION OF APPLICATION UNCLEAR)
  7. QUETIAPINE [Concomitant]
     Active Substance: QUETIAPINE
     Indication: Depression
  8. VALPROATE SODIUM [Concomitant]
     Active Substance: VALPROATE SODIUM
     Indication: Schizophrenia
     Dosage: 1 DOSAGE FORM, BID (1 -0 -1;DURATION OF APPLICATION NOT CLEAR)
  9. VALPROATE SODIUM [Concomitant]
     Active Substance: VALPROATE SODIUM
     Indication: Depression
  10. PIPERACILLIN AND TAZOBACTAM [Concomitant]
     Active Substance: PIPERACILLIN SODIUM\TAZOBACTAM SODIUM
     Indication: Sepsis
     Dosage: 1 DOSAGE FORM, Q8H (1 -1 -1;USE FOR 7 DAYS)
     Dates: start: 202505
  11. HEPARIN [Concomitant]
     Active Substance: HEPARIN SODIUM
     Indication: Thrombosis prophylaxis
  12. AZITHROMYCIN [Concomitant]
     Active Substance: AZITHROMYCIN
     Indication: Pulmonary sepsis

REACTIONS (6)
  - Rhabdomyolysis [Recovering/Resolving]
  - Sepsis [Recovering/Resolving]
  - End stage renal disease [Recovering/Resolving]
  - Acute kidney injury [Recovering/Resolving]
  - Somnolence [Recovering/Resolving]
  - Drug level increased [Recovering/Resolving]

NARRATIVE: CASE EVENT DATE: 20250501
